FAERS Safety Report 9729837 (Version 1)
Quarter: 2013Q4

REPORT INFORMATION
  Report Type: Spontaneous
  Country: GB (occurrence: None)
  Receive Date: 20131203
  Receipt Date: 20131203
  Transmission Date: 20140711
  Serious: Yes (Hospitalization)
  Sender: FDA-Public Use
  Company Number: AUR-APL-2013-09881

PATIENT
  Age: 82 Year
  Sex: Female
  Weight: 56.3 kg

DRUGS (12)
  1. AMOXICILLIN+CLAVULANIC ACID [Suspect]
     Indication: LOWER RESPIRATORY TRACT INFECTION
     Dates: end: 20121114
  2. TERBINAFINE [Suspect]
     Indication: ONYCHOMYCOSIS
  3. BISOPROLOL (BISOPROLOL) [Concomitant]
  4. BRINZOLAMIDE (BRINZOLAMIDE) [Concomitant]
  5. CO-CODAMOL (PANADEINE CO) [Concomitant]
  6. DIGOXIN (DIGOXIN) [Concomitant]
  7. FUROSEMIDE (FUROSEMIDE) [Concomitant]
  8. LANSOPRAZOLE (LANSOOPRAZOLE) [Concomitant]
  9. LATANOOPROST (LATANOPROST) [Concomitant]
  10. NITROFURANTOIN [Concomitant]
  11. RAMIPRIL (RAMIPRIL) [Concomitant]
  12. WARFARIN SODIUM (WARFARIN SODIUM) [Concomitant]

REACTIONS (1)
  - Jaundice cholestatic [None]
